FAERS Safety Report 9048490 (Version 1)
Quarter: 2013Q1

REPORT INFORMATION
  Report Type: Spontaneous
  Country: US (occurrence: None)
  Receive Date: 20130130
  Receipt Date: 20130130
  Transmission Date: 20140127
  Serious: Yes (Hospitalization)
  Sender: FDA-Public Use
  Company Number: None

PATIENT
  Age: 65 Year
  Sex: Male
  Weight: 93.1 kg

DRUGS (15)
  1. DILAUDID [Suspect]
     Indication: PAIN
     Dosage: RECENT
     Route: 042
  2. MORPHINE [Suspect]
     Indication: PAIN
     Dosage: RECENT
     Route: 042
  3. CITALOPRAM [Concomitant]
  4. OMEPRAZOLE [Concomitant]
  5. CARVEDILOL [Concomitant]
  6. DIGOXIN [Concomitant]
  7. LISINOPRIL [Concomitant]
  8. KCL [Concomitant]
  9. LASIX [Concomitant]
  10. GLIPIZIDE [Concomitant]
  11. CASODEX [Concomitant]
  12. SIMVASTATIN [Concomitant]
  13. ASA [Concomitant]
  14. METFORMIN [Concomitant]
  15. PERICO [Concomitant]

REACTIONS (7)
  - Hypoxia [None]
  - Hyperhidrosis [None]
  - Confusional state [None]
  - Chest pain [None]
  - Respiratory failure [None]
  - Cardiac arrest [None]
  - Pulseless electrical activity [None]
